FAERS Safety Report 12631851 (Version 3)
Quarter: 2016Q3

REPORT INFORMATION
  Report Type: Spontaneous
  Country: US (occurrence: US)
  Receive Date: 20160808
  Receipt Date: 20160822
  Transmission Date: 20161109
  Serious: No
  Sender: FDA-Public Use
  Company Number: US-BEH-2016061230

PATIENT
  Age: 44 Year
  Sex: Female
  Weight: 77.11 kg

DRUGS (30)
  1. DIPHENHYDRAMINE. [Concomitant]
     Active Substance: DIPHENHYDRAMINE
  2. ASTEPRO [Concomitant]
     Active Substance: AZELASTINE HYDROCHLORIDE
  3. GARLIC. [Concomitant]
     Active Substance: GARLIC
  4. FLONASE [Concomitant]
     Active Substance: FLUTICASONE PROPIONATE
  5. ADVAIR HFA [Concomitant]
     Active Substance: FLUTICASONE PROPIONATE\SALMETEROL XINAFOATE
  6. LUNESTA [Concomitant]
     Active Substance: ESZOPICLONE
  7. MULTIVITAMIN [Concomitant]
     Active Substance: VITAMINS
  8. HIZENTRA [Suspect]
     Active Substance: HUMAN IMMUNOGLOBULIN G
     Indication: IMMUNODEFICIENCY COMMON VARIABLE
     Dosage: 7 G, QW
     Route: 058
     Dates: start: 20130408
  9. LIDOCAINE/PRILOCAINE [Concomitant]
     Active Substance: LIDOCAINE\PRILOCAINE
  10. FISH OIL [Concomitant]
     Active Substance: FISH OIL
  11. ACIOPHILUS [Concomitant]
  12. XOLAIR [Concomitant]
     Active Substance: OMALIZUMAB
  13. PHENTERMINE. [Concomitant]
     Active Substance: PHENTERMINE
  14. FIORICET [Concomitant]
     Active Substance: ACETAMINOPHEN\BUTALBITAL\CAFFEINE
  15. CYCANOCOBALAMIN [Concomitant]
  16. METRONIDAZOLE. [Concomitant]
     Active Substance: METRONIDAZOLE
  17. ZYRTEC [Concomitant]
     Active Substance: CETIRIZINE HYDROCHLORIDE
  18. CLARITIN [Concomitant]
     Active Substance: LORATADINE
  19. CALCIUM [Concomitant]
     Active Substance: CALCIUM
  20. ZOFRAN [Concomitant]
     Active Substance: ONDANSETRON HYDROCHLORIDE
  21. FEXOFENADINE [Concomitant]
     Active Substance: FEXOFENADINE\FEXOFENADINE HYDROCHLORIDE
  22. GLUCOSAMINE [Concomitant]
     Active Substance: GLUCOSAMINE
  23. PREDNISONE. [Concomitant]
     Active Substance: PREDNISONE
  24. PROVENTIL [Concomitant]
     Active Substance: ALBUTEROL
  25. LIPITOR [Concomitant]
     Active Substance: ATORVASTATIN CALCIUM
  26. METOPROLOL. [Concomitant]
     Active Substance: METOPROLOL
  27. CRANBERRY. [Concomitant]
     Active Substance: CRANBERRY
  28. MUCINEX [Concomitant]
     Active Substance: GUAIFENESIN
  29. VITAMIN B12 [Concomitant]
     Active Substance: CYANOCOBALAMIN
  30. ACETAMINOPHEN. [Concomitant]
     Active Substance: ACETAMINOPHEN

REACTIONS (2)
  - Urinary tract infection [Unknown]
  - Urinary tract infection [Recovered/Resolved]

NARRATIVE: CASE EVENT DATE: 201601
